FAERS Safety Report 16867114 (Version 1)
Quarter: 2019Q3

REPORT INFORMATION
  Report Type: Report from Study
  Country: US (occurrence: US)
  Receive Date: 20190930
  Receipt Date: 20190930
  Transmission Date: 20191005
  Serious: Yes (Hospitalization)
  Sender: FDA-Public Use
  Company Number: US-ROCHE-2417398

PATIENT
  Sex: Male
  Weight: 107 kg

DRUGS (16)
  1. COREG [Concomitant]
     Active Substance: CARVEDILOL
     Route: 065
  2. DULERA [Concomitant]
     Active Substance: FORMOTEROL FUMARATE DIHYDRATE\MOMETASONE FUROATE
  3. MACROBID [Concomitant]
     Active Substance: NITROFURANTOIN\NITROFURANTOIN MONOHYDRATE
     Route: 065
  4. ZOVIRAX [Concomitant]
     Active Substance: ACYCLOVIR
     Route: 065
  5. TACROLIMUS. [Suspect]
     Active Substance: TACROLIMUS
     Indication: IMMUNOSUPPRESSION
     Route: 048
     Dates: start: 20190529, end: 20190808
  6. PREDNISONE. [Suspect]
     Active Substance: PREDNISONE
     Indication: IMMUNOSUPPRESSION
     Route: 048
     Dates: start: 20190530
  7. PRILOSEC [Concomitant]
     Active Substance: OMEPRAZOLE MAGNESIUM
     Route: 065
  8. MYCOPHENOLATE MOFETIL. [Suspect]
     Active Substance: MYCOPHENOLATE MOFETIL
     Indication: IMMUNOSUPPRESSION
     Route: 048
     Dates: start: 20190817
  9. ZYLOPRIM [Concomitant]
     Active Substance: ALLOPURINOL
     Route: 065
  10. VITAMIN D3 [Concomitant]
     Active Substance: CHOLECALCIFEROL
     Route: 065
  11. COLACE [Concomitant]
     Active Substance: DOCUSATE SODIUM
     Route: 065
  12. TYLENOL [Concomitant]
     Active Substance: ACETAMINOPHEN
     Route: 065
  13. SENOKOT [Concomitant]
     Active Substance: SENNOSIDES
     Route: 065
  14. ASKP1240 [Suspect]
     Active Substance: BLESELUMAB
     Indication: IMMUNOSUPPRESSION
     Route: 042
     Dates: start: 20190529
  15. ECOTRIN [Concomitant]
     Active Substance: ASPIRIN
     Route: 065
  16. CARDURA [Concomitant]
     Active Substance: DOXAZOSIN MESYLATE
     Route: 065

REACTIONS (1)
  - Focal segmental glomerulosclerosis [Recovering/Resolving]

NARRATIVE: CASE EVENT DATE: 20190808
